FAERS Safety Report 20664444 (Version 1)
Quarter: 2022Q2

REPORT INFORMATION
  Report Type: Spontaneous
  Country: US (occurrence: US)
  Receive Date: 20220401
  Receipt Date: 20220401
  Transmission Date: 20220720
  Serious: Yes (Other)
  Sender: FDA-Public Use
  Company Number: US-NOVARTISPH-NVSC2022US069893

PATIENT
  Age: 22 Month
  Sex: Male

DRUGS (1)
  1. METHOTREXATE [Suspect]
     Active Substance: METHOTREXATE
     Indication: B precursor type acute leukaemia
     Dosage: UNK
     Route: 037

REACTIONS (3)
  - Juvenile chronic myelomonocytic leukaemia [Recovered/Resolved]
  - Second primary malignancy [Recovered/Resolved]
  - Neurotoxicity [Unknown]
